FAERS Safety Report 15233339 (Version 1)
Quarter: 2018Q3

REPORT INFORMATION
  Report Type: Spontaneous
  Country: CA (occurrence: CA)
  Receive Date: 20180802
  Receipt Date: 20180802
  Transmission Date: 20181010
  Serious: Yes (Hospitalization)
  Sender: FDA-Public Use
  Company Number: CA-TEVA-2018-CA-934928

PATIENT
  Age: 24 Year
  Sex: Female
  Weight: 77 kg

DRUGS (1)
  1. PLAN B [Suspect]
     Active Substance: LEVONORGESTREL
     Indication: CONTRACEPTION
     Dosage: FREQUENCY: ONCE
     Route: 048

REACTIONS (5)
  - Headache [Recovered/Resolved]
  - Hypoaesthesia [Recovered/Resolved]
  - Confusional state [Recovered/Resolved]
  - Mental impairment [Recovered/Resolved]
  - Mutism [Recovered/Resolved]
